FAERS Safety Report 5560022-4 (Version None)
Quarter: 2007Q4

REPORT INFORMATION
  Report Type: 
  Country: None (occurrence: None)
  Receive Date: 20071214
  Receipt Date: 20071024
  Transmission Date: 20080405
  Serious: No
  Sender: FDA-Public Use
  Company Number: US-ABBOTT-07P-163-0422612-00

PATIENT
  Sex: Female

DRUGS (4)
  1. HUMIRA [Suspect]
     Indication: CROHN'S DISEASE
     Dates: start: 20071009, end: 20071009
  2. HUMIRA [Suspect]
     Indication: RHEUMATOID ARTHRITIS
     Dates: start: 20071023, end: 20071023
  3. HUMIRA [Suspect]
  4. MACAPOPURAN [Concomitant]
     Indication: PAIN

REACTIONS (3)
  - BODY TEMPERATURE INCREASED [None]
  - HOT FLUSH [None]
  - PRURITUS [None]
